FAERS Safety Report 14057873 (Version 2)
Quarter: 2017Q4

REPORT INFORMATION
  Report Type: Report from Study
  Country: US (occurrence: US)
  Receive Date: 20171006
  Receipt Date: 20171221
  Transmission Date: 20180321
  Serious: No
  Sender: FDA-Public Use
  Company Number: PHEH2017US031943

PATIENT
  Age: 46 Year
  Sex: Female

DRUGS (1)
  1. COSENTYX [Suspect]
     Active Substance: SECUKINUMAB
     Indication: PSORIASIS
     Dosage: 150 MG, QMO (EVERY 4 WEEKS)
     Route: 058
     Dates: start: 20170414

REACTIONS (3)
  - Tooth fracture [Recovering/Resolving]
  - Inappropriate schedule of drug administration [Unknown]
  - Device leakage [Unknown]

NARRATIVE: CASE EVENT DATE: 20170830
